FAERS Safety Report 13349706 (Version 1)
Quarter: 2017Q1

REPORT INFORMATION
  Report Type: Spontaneous
  Country: US (occurrence: US)
  Receive Date: 20170320
  Receipt Date: 20170320
  Transmission Date: 20170429
  Serious: No
  Sender: FDA-Public Use
  Company Number: US-WARNER CHILCOTT, LLC-1064400

PATIENT
  Age: 50 Year
  Sex: Male

DRUGS (2)
  1. DELZICOL [Suspect]
     Active Substance: MESALAMINE
     Indication: COLITIS ULCERATIVE
     Route: 048
     Dates: start: 201609
  2. DELZICOL [Suspect]
     Active Substance: MESALAMINE
     Route: 048
     Dates: start: 201405, end: 201609

REACTIONS (3)
  - Medication residue present [Not Recovered/Not Resolved]
  - Drug ineffective [Not Recovered/Not Resolved]
  - Wrong technique in product usage process [Not Recovered/Not Resolved]

NARRATIVE: CASE EVENT DATE: 201609
